FAERS Safety Report 9816309 (Version 2)
Quarter: 2014Q1

REPORT INFORMATION
  Report Type: Spontaneous
  Country: CA (occurrence: CA)
  Receive Date: 20140114
  Receipt Date: 20140114
  Transmission Date: 20141002
  Serious: Yes (Hospitalization, Other)
  Sender: FDA-Public Use
  Company Number: CA-BAXTER-2013BAX050533

PATIENT
  Age: 50 Year
  Sex: Male

DRUGS (2)
  1. DIANEAL PD4 SOLUTION WITH 2.5% DEXTROSE AND 2.5 MEQ/L CALCIUM [Suspect]
     Indication: PERITONEAL DIALYSIS
     Route: 033
     Dates: start: 2012
  2. EXTRANEAL [Suspect]
     Indication: PERITONEAL DIALYSIS
     Route: 033
     Dates: start: 2012

REACTIONS (5)
  - Cerebrovascular accident [Recovered/Resolved]
  - Gastric disorder [Recovered/Resolved]
  - Myocardial infarction [Recovered/Resolved]
  - Limb injury [Not Recovered/Not Resolved]
  - Abdominal discomfort [Recovered/Resolved]
